FAERS Safety Report 5104163-4 (Version None)
Quarter: 2006Q3

REPORT INFORMATION
  Report Type: 
  Country: None (occurrence: None)
  Receive Date: 20060911
  Receipt Date: 20060908
  Transmission Date: 20061208
  Serious: Yes (Other)
  Sender: FDA-Public Use
  Company Number: HQWYE088229AUG06

PATIENT
  Age: 61 Year
  Sex: Female

DRUGS (7)
  1. EFFEXOR XR [Suspect]
     Indication: DEPRESSION
     Dosage: 225 MG 1X PER 1 DAY ORAL
     Route: 048
     Dates: start: 20060731, end: 20060801
  2. EFFEXOR XR [Suspect]
     Indication: DEPRESSION
     Dosage: 225 MG 1X PER 1 DAY ORAL
     Route: 048
     Dates: start: 20060801
  3. AMITRIPTYLINE HCL [Suspect]
     Indication: DEPRESSION
     Dosage: 50 MG 1X PER 1 DAY
     Route: 048
     Dates: start: 20060806, end: 20060808
  4. METFORMIN HCL [Concomitant]
  5. BROMAZEPAM (BROMAZEPAM) [Concomitant]
  6. INSULIN HUMAN (INSULIN HUMAN) [Concomitant]
  7. ZOLPIDEM TARTRATE [Concomitant]

REACTIONS (3)
  - FALL [None]
  - HYPOTENSION [None]
  - RADIUS FRACTURE [None]
